FAERS Safety Report 13560938 (Version 1)
Quarter: 2017Q2

REPORT INFORMATION
  Report Type: Spontaneous
  Country: US (occurrence: US)
  Receive Date: 20170518
  Receipt Date: 20170518
  Transmission Date: 20170830
  Serious: No
  Sender: FDA-Public Use
  Company Number: US-PFIZER INC-2017212932

PATIENT
  Age: 59 Year
  Sex: Female

DRUGS (1)
  1. QUILLIVANT XR [Suspect]
     Active Substance: METHYLPHENIDATE HYDROCHLORIDE
     Dosage: 20 MG, 1X/DAY (EVERY MORNING)
     Route: 048

REACTIONS (5)
  - Nausea [Unknown]
  - Faeces discoloured [Unknown]
  - Diarrhoea [Unknown]
  - Vomiting [Unknown]
  - Drug intolerance [Unknown]
